FAERS Safety Report 25875644 (Version 1)
Quarter: 2025Q4

REPORT INFORMATION
  Report Type: Spontaneous
  Country: US (occurrence: None)
  Receive Date: 20251003
  Receipt Date: 20251003
  Transmission Date: 20260118
  Serious: Yes (Other)
  Sender: ADDMEDICA
  Company Number: US-CTRS-202500274

PATIENT
  Age: 75 Year
  Sex: Female

DRUGS (1)
  1. HYDROXYUREA [Suspect]
     Active Substance: HYDROXYUREA
     Indication: Chronic myeloid leukaemia

REACTIONS (1)
  - Tumour lysis syndrome [Recovered/Resolved]
